FAERS Safety Report 7875541-5 (Version None)
Quarter: 2011Q4

REPORT INFORMATION
  Report Type: 
  Country: None (occurrence: None)
  Receive Date: 20111031
  Receipt Date: 20111027
  Transmission Date: 20120403
  Serious: Yes (Hospitalization, Other)
  Sender: FDA-Public Use
  Company Number: US-SANOFI-AVENTIS-2011SA070784

PATIENT
  Age: 58 Year
  Sex: Female

DRUGS (6)
  1. ESTROGEN NOS [Suspect]
     Route: 065
  2. ASPIRIN [Concomitant]
  3. ALBUTEROL [Concomitant]
     Dates: end: 20110701
  4. ASPIRIN [Concomitant]
     Dates: start: 20110701
  5. MULTAQ [Suspect]
     Indication: ATRIAL FIBRILLATION
     Route: 048
     Dates: start: 20091001
  6. MULTAQ [Suspect]
     Route: 048
     Dates: start: 20091001

REACTIONS (10)
  - INSOMNIA [None]
  - WEIGHT INCREASED [None]
  - CHEST DISCOMFORT [None]
  - THROMBOSIS [None]
  - OEDEMA PERIPHERAL [None]
  - DYSPNOEA [None]
  - HYPERSENSITIVITY [None]
  - DIARRHOEA [None]
  - RASH [None]
  - VISUAL IMPAIRMENT [None]
